FAERS Safety Report 4782788-3 (Version None)
Quarter: 2005Q3

REPORT INFORMATION
  Report Type: 
  Country: None (occurrence: None)
  Receive Date: 20050914
  Receipt Date: 20050118
  Transmission Date: 20060218
  Serious: Yes (Hospitalization, Other)
  Sender: FDA-Public Use
  Company Number: 163-20785-03060221

PATIENT
  Age: 59 Year
  Sex: Female

DRUGS (10)
  1. THALOMID [Suspect]
     Indication: MULTIPLE MYELOMA
     Dosage: UP TO 600 MG, QD, ORAL
     Route: 048
     Dates: start: 20010201, end: 20011005
  2. DEXAMETHASONE [Concomitant]
  3. LEVOXYL [Concomitant]
  4. TOPROL-XL [Concomitant]
  5. PROTONIX [Concomitant]
  6. DIFLUCAN [Concomitant]
  7. ASPIRIN ENTERIC COATED (ACETYLSALICYLIC ACID) [Concomitant]
  8. CENTRUM SILVER [Concomitant]
  9. PAMIDRONATE (PAMIDRONAE DISODIUM) [Concomitant]
  10. BISPHOSPHONATES [Concomitant]

REACTIONS (19)
  - ASTHENIA [None]
  - BLOOD ALBUMIN DECREASED [None]
  - CEREBRAL INFARCTION [None]
  - COMA [None]
  - CONDITION AGGRAVATED [None]
  - COORDINATION ABNORMAL [None]
  - DEPRESSION [None]
  - ECHOCARDIOGRAM ABNORMAL [None]
  - EMBOLIC STROKE [None]
  - EYE DISORDER [None]
  - FATIGUE [None]
  - GRAND MAL CONVULSION [None]
  - NEUROLOGICAL EXAMINATION ABNORMAL [None]
  - NEUROPATHY [None]
  - PARAESTHESIA [None]
  - PLATELET COUNT DECREASED [None]
  - ROULEAUX FORMATION [None]
  - TROPONIN INCREASED [None]
  - URINARY INCONTINENCE [None]
